FAERS Safety Report 4830778-4 (Version None)
Quarter: 2005Q4

REPORT INFORMATION
  Report Type: 
  Country: None (occurrence: None)
  Receive Date: 20051117
  Receipt Date: 20050930
  Transmission Date: 20060501
  Serious: Yes (Hospitalization)
  Sender: FDA-Public Use
  Company Number: US-MERCK-0510USA00698

PATIENT
  Age: 57 Year
  Sex: Male
  Weight: 118 kg

DRUGS (6)
  1. VIOXX [Suspect]
     Indication: MYOSITIS
     Route: 048
     Dates: start: 20030805, end: 20040329
  2. AMOXIL [Concomitant]
     Route: 065
  3. ANACIN [Concomitant]
     Route: 065
  4. ASPIRIN [Concomitant]
     Route: 065
  5. PREDNISONE [Concomitant]
     Route: 065
  6. SINEQUAN [Concomitant]
     Route: 065

REACTIONS (3)
  - CARDIAC DISORDER [None]
  - CORONARY ARTERY OCCLUSION [None]
  - MYOCARDIAL INFARCTION [None]
